FAERS Safety Report 6544031-4 (Version None)
Quarter: 2010Q1

REPORT INFORMATION
  Report Type: 
  Country: None (occurrence: None)
  Receive Date: 20100119
  Receipt Date: 20100119
  Transmission Date: 20100710
  Serious: Yes (Other)
  Sender: FDA-Public Use
  Company Number: None

PATIENT
  Age: 60 Year
  Sex: Female
  Weight: 136.0791 kg

DRUGS (4)
  1. BENADRYL [Suspect]
     Indication: HYPERSENSITIVITY
     Dosage: 25 MG N/A PO
     Route: 048
     Dates: start: 20091215, end: 20100105
  2. BENADRYL [Suspect]
     Dosage: N/A N/A PO
     Route: 048
     Dates: start: 20071109, end: 20091208
  3. BENADRYL ALLERGY ULTRAAB [Concomitant]
  4. BENADRYL ALLERGY AND COLD [Concomitant]

REACTIONS (2)
  - POOR QUALITY DRUG ADMINISTERED [None]
  - PRODUCT QUALITY ISSUE [None]
